FAERS Safety Report 8829232 (Version 1)
Quarter: 2012Q4

REPORT INFORMATION
  Report Type: 
  Country: TH (occurrence: TH)
  Receive Date: 20121009
  Receipt Date: 20121009
  Transmission Date: 20130627
  Serious: Yes (Other)
  Sender: FDA-Public Use
  Company Number: PHHY2012TH085121

PATIENT
  Age: 8 Year
  Sex: Male

DRUGS (6)
  1. CICLOSPORIN [Suspect]
     Indication: RENAL TRANSPLANT
     Dates: start: 200008
  2. CICLOSPORIN [Suspect]
     Indication: IMMUNOSUPPRESSION
  3. PREDNISOLONE [Suspect]
     Indication: IMMUNOSUPPRESSION
     Dates: start: 200008
  4. PREDNISOLONE [Suspect]
     Dosage: 5 mg, UNK
  5. AZATHIOPRINE [Suspect]
     Indication: IMMUNOSUPPRESSION
     Dates: start: 200008
  6. MYCOPHENOLATE MOFETIL [Suspect]
     Indication: IMMUNOSUPPRESSION
     Dates: start: 200009

REACTIONS (5)
  - Post transplant lymphoproliferative disorder [Unknown]
  - Non-Hodgkin^s lymphoma [Recovered/Resolved]
  - Pyrexia [Recovered/Resolved]
  - Abdominal pain upper [Recovered/Resolved]
  - Kidney transplant rejection [Recovered/Resolved]
